FAERS Safety Report 9705913 (Version 2)
Quarter: 2013Q4

REPORT INFORMATION
  Report Type: Spontaneous
  Country: US (occurrence: US)
  Receive Date: 20131122
  Receipt Date: 20131122
  Transmission Date: 20140711
  Serious: No
  Sender: FDA-Public Use
  Company Number: US-GALDERMA-US13000504

PATIENT
  Age: 74 Year
  Sex: Female
  Weight: 59 kg

DRUGS (5)
  1. CLOBEX (CLOBETASOL PROPIONATE) SPRAY, 0.05% [Suspect]
     Indication: ALOPECIA
     Route: 061
     Dates: start: 20130120
  2. THYROID MEDICATION [Concomitant]
  3. HEART MEDICATION [Concomitant]
  4. HYPERTENSION MEDICATION [Concomitant]
     Indication: HYPERTENSION
  5. CHOLESTEROL MEDICATION [Concomitant]
     Indication: BLOOD CHOLESTEROL INCREASED

REACTIONS (11)
  - Alopecia [Recovering/Resolving]
  - Skin burning sensation [Recovering/Resolving]
  - Erythema [Recovering/Resolving]
  - Skin exfoliation [Recovering/Resolving]
  - Off label use [Recovered/Resolved]
  - Pain of skin [Not Recovered/Not Resolved]
  - Drug ineffective for unapproved indication [Not Recovered/Not Resolved]
  - Dry skin [Not Recovered/Not Resolved]
  - Skin irritation [Recovered/Resolved]
  - Skin fragility [Not Recovered/Not Resolved]
  - Scab [Not Recovered/Not Resolved]
